FAERS Safety Report 5203357-7 (Version None)
Quarter: 2007Q1

REPORT INFORMATION
  Report Type: 
  Country: None (occurrence: None)
  Receive Date: 20070110
  Receipt Date: 20070103
  Transmission Date: 20070707
  Serious: Yes (Life-Threatening, Hospitalization)
  Sender: FDA-Public Use
  Company Number: GB-JNJFOC-20061003445

PATIENT
  Age: 43 Year
  Sex: Male

DRUGS (6)
  1. RISPERDAL [Suspect]
     Route: 048
  2. RISPERDAL [Suspect]
     Route: 048
  3. RISPERDAL [Suspect]
     Indication: PSYCHOTIC DISORDER
     Route: 048
  4. FLUOXETINE [Concomitant]
     Indication: DEPRESSION
  5. DOCUSATE SODIUM [Concomitant]
     Indication: CONSTIPATION
  6. MOVICOL [Concomitant]
     Indication: CONSTIPATION

REACTIONS (2)
  - INFECTION [None]
  - NEUROLEPTIC MALIGNANT SYNDROME [None]
